FAERS Safety Report 24091479 (Version 10)
Quarter: 2025Q1

REPORT INFORMATION
  Report Type: Report from Study
  Country: US (occurrence: US)
  Receive Date: 20240715
  Receipt Date: 20250123
  Transmission Date: 20250409
  Serious: Yes (Hospitalization)
  Sender: KARYOPHARM THERAPEUTICS
  Company Number: US-KARYOPHARM-2024KPT001264

PATIENT
  Age: 66 Year
  Sex: Female
  Weight: 99.3 kg

DRUGS (19)
  1. SELINEXOR [Suspect]
     Active Substance: SELINEXOR
     Indication: Glioblastoma
     Dosage: 80 MG, WEEKLY
     Route: 048
     Dates: start: 20240607
  2. SELINEXOR [Suspect]
     Active Substance: SELINEXOR
     Dates: start: 2024
  3. SELINEXOR [Suspect]
     Active Substance: SELINEXOR
     Dates: start: 2024, end: 2024
  4. SELINEXOR [Suspect]
     Active Substance: SELINEXOR
     Dosage: 40 MG, WEEKLY
     Route: 048
     Dates: start: 2024
  5. ATORVASTATIN [Concomitant]
     Active Substance: ATORVASTATIN
     Dosage: 20 MG, QD
     Route: 048
  6. DEXAMETHASONE [Concomitant]
     Active Substance: DEXAMETHASONE
     Dosage: 2 MG, QD
     Route: 048
  7. DOCUSATE [Concomitant]
     Active Substance: DOCUSATE
     Route: 048
  8. FAMOTIDINE [Concomitant]
     Active Substance: FAMOTIDINE
     Dosage: 20 MG, QD
     Route: 048
  9. LEVETIRACETAM [Concomitant]
     Active Substance: LEVETIRACETAM
     Dosage: 1000 MG, BID
     Route: 048
  10. OLANZAPINE [Concomitant]
     Active Substance: OLANZAPINE
     Route: 048
  11. ONDANSETRON [Concomitant]
     Active Substance: ONDANSETRON
     Route: 048
  12. LIPITOR [Concomitant]
     Active Substance: ATORVASTATIN CALCIUM
     Indication: Blood cholesterol
     Dosage: 20 MG, QD
  13. DECADRON [Concomitant]
     Active Substance: DEXAMETHASONE
     Indication: Glioblastoma multiforme
     Dosage: 2 MG, QD
     Dates: start: 20240125
  14. PEPCID [Concomitant]
     Active Substance: FAMOTIDINE
     Indication: Gastrooesophageal reflux disease
     Dosage: 20 MG, QD
     Dates: start: 20220226
  15. KEPPRA [Concomitant]
     Active Substance: LEVETIRACETAM
     Indication: Seizure
     Dosage: 1000 MG, BID
     Dates: start: 20220304
  16. LASIX [Concomitant]
     Active Substance: FUROSEMIDE
     Indication: Oedema
     Dosage: 40 MG, BID
     Route: 030
     Dates: start: 20241024, end: 20241029
  17. LASIX [Concomitant]
     Active Substance: FUROSEMIDE
     Dosage: 40 MG, BID
     Route: 048
     Dates: start: 20241029
  18. SPIRONOLACTONE [Concomitant]
     Active Substance: SPIRONOLACTONE
     Indication: Oedema
     Dosage: 25 MG, QD
     Dates: start: 20241028
  19. LEVOFLOXACIN [Concomitant]
     Active Substance: LEVOFLOXACIN
     Indication: Deep vein thrombosis
     Dosage: 40 MG, BID
     Route: 058
     Dates: start: 20240909

REACTIONS (11)
  - Pulmonary embolism [Recovered/Resolved]
  - Oedema peripheral [Recovered/Resolved with Sequelae]
  - Oedema peripheral [Recovered/Resolved]
  - Hyponatraemia [Recovered/Resolved]
  - Urinary tract infection [Recovered/Resolved]
  - Asthenia [Unknown]
  - Nausea [Not Recovered/Not Resolved]
  - Constipation [Not Recovered/Not Resolved]
  - Fatigue [Not Recovered/Not Resolved]
  - Weight decreased [Not Recovered/Not Resolved]
  - Platelet count decreased [Unknown]

NARRATIVE: CASE EVENT DATE: 20240607
